FAERS Safety Report 7161015-6 (Version None)
Quarter: 2010Q4

REPORT INFORMATION
  Report Type: 
  Country: None (occurrence: None)
  Receive Date: 20101214
  Receipt Date: 20091204
  Transmission Date: 20110411
  Serious: No
  Sender: FDA-Public Use
  Company Number: US-AMGEN-KDL378324

PATIENT

DRUGS (8)
  1. ENBREL [Suspect]
     Indication: PRODUCT USED FOR UNKNOWN INDICATION
     Dosage: 50 MG, QWK
     Route: 058
  2. XALATAN [Concomitant]
     Dosage: UNK UNK, UNK
  3. PREDNISONE [Concomitant]
     Dosage: 5 MG, UNK
  4. ZINC [Concomitant]
     Dosage: 50 MG, UNK
  5. FISH OIL [Concomitant]
     Dosage: 500 MG, UNK
  6. MAGNESIUM [Concomitant]
     Dosage: 550 MG, UNK
  7. FOLIC ACID [Concomitant]
     Dosage: 5 MG, UNK
  8. COLECALCIFEROL [Concomitant]
     Dosage: UNK UNK, UNK

REACTIONS (3)
  - HEADACHE [None]
  - NIGHT SWEATS [None]
  - THIRST [None]
